FAERS Safety Report 8540499-2 (Version None)
Quarter: 2012Q3

REPORT INFORMATION
  Report Type: 
  Country: None (occurrence: None)
  Receive Date: 20120726
  Receipt Date: 20110801
  Transmission Date: 20120928
  Serious: No
  Sender: FDA-Public Use
  Company Number: US-ASTRAZENECA-2011SE45952

PATIENT
  Age: 92 Year
  Sex: Female
  Weight: 54.4 kg

DRUGS (7)
  1. CARVEDILOL [Concomitant]
     Route: 065
  2. NAMENDA [Concomitant]
     Route: 065
  3. ARICEPT [Concomitant]
     Route: 065
  4. SEROQUEL [Suspect]
     Indication: DEMENTIA
     Route: 048
  5. ASPIRIN [Concomitant]
     Route: 065
  6. CARTIA XT [Concomitant]
     Route: 065
  7. SIMVASTATIN [Concomitant]
     Route: 065

REACTIONS (2)
  - ABDOMINAL DISCOMFORT [None]
  - OFF LABEL USE [None]
